FAERS Safety Report 21178254 (Version 1)
Quarter: 2022Q3

REPORT INFORMATION
  Report Type: Spontaneous
  Country: US (occurrence: US)
  Receive Date: 20220805
  Receipt Date: 20220805
  Transmission Date: 20221027
  Serious: Yes (Other)
  Sender: FDA-Public Use
  Company Number: US-PFIZER INC-202201033931

PATIENT

DRUGS (1)
  1. DIAZEPAM [Suspect]
     Active Substance: DIAZEPAM
     Indication: Catatonia
     Dosage: OPTIMAL DOSE

REACTIONS (4)
  - Delirium [Unknown]
  - Toxicity to various agents [Unknown]
  - Off label use [Unknown]
  - Drug effective for unapproved indication [Unknown]
